FAERS Safety Report 5807439-8 (Version None)
Quarter: 2008Q3

REPORT INFORMATION
  Report Type: 
  Country: None (occurrence: None)
  Receive Date: 20080711
  Receipt Date: 20080707
  Transmission Date: 20090109
  Serious: Yes (Disabling)
  Sender: FDA-Public Use
  Company Number: CH-MERCK-0807CHE00010

PATIENT
  Age: 70 Year
  Sex: Female
  Weight: 96 kg

DRUGS (7)
  1. JANUVIA [Suspect]
     Indication: DIABETES MELLITUS
     Route: 048
     Dates: start: 20071101, end: 20080401
  2. ASPIRIN [Concomitant]
     Indication: PROPHYLAXIS
     Route: 048
  3. LOSARTAN POTASSIUM [Concomitant]
     Route: 048
     Dates: start: 20070101
  4. PIRETANIDE [Concomitant]
     Indication: HYPERTONIA
     Route: 048
  5. BISOPROLOL FUMARATE [Concomitant]
     Indication: HYPERTONIA
     Route: 048
  6. PRAVASTATIN SODIUM [Concomitant]
     Route: 048
  7. VASERETIC [Concomitant]
     Indication: HYPERTONIA
     Route: 048

REACTIONS (2)
  - MELANOCYTIC NAEVUS [None]
  - PRURITUS [None]
